FAERS Safety Report 9626827 (Version 1)
Quarter: 2013Q4

REPORT INFORMATION
  Report Type: Spontaneous
  Country: US (occurrence: US)
  Receive Date: 20131016
  Receipt Date: 20131016
  Transmission Date: 20140711
  Serious: Yes (Other)
  Sender: FDA-Public Use
  Company Number: US-BAYER-2013-124284

PATIENT
  Age: 43 Year
  Sex: Female
  Weight: 104.31 kg

DRUGS (6)
  1. YAZ [Suspect]
  2. YASMIN [Suspect]
  3. PROPOXYPHENE HCL AND ACETAMINOPHEN [Concomitant]
     Dosage: 50-325  MG
     Route: 048
     Dates: start: 20070102
  4. LEXAPRO [Concomitant]
     Indication: ANXIETY
     Dosage: 10 MG, UNK
     Route: 048
     Dates: start: 20070208
  5. LEXAPRO [Concomitant]
     Indication: DEPRESSION
  6. ZITHROMAX [Concomitant]
     Indication: BRONCHITIS
     Dosage: UNK
     Route: 048
     Dates: start: 20070308

REACTIONS (1)
  - Deep vein thrombosis [Recovered/Resolved]
